FAERS Safety Report 25984402 (Version 3)
Quarter: 2025Q4

REPORT INFORMATION
  Report Type: Report from Study
  Country: JP (occurrence: JP)
  Receive Date: 20251031
  Receipt Date: 20251119
  Transmission Date: 20260119
  Serious: Yes (Hospitalization)
  Sender: PFIZER
  Company Number: JP-PFIZER INC-PV202400065266

PATIENT
  Age: 33 Year
  Sex: Male

DRUGS (5)
  1. SIROLIMUS [Suspect]
     Active Substance: SIROLIMUS
     Indication: Klippel-Trenaunay syndrome
     Dosage: 2 MG, DAILY
     Route: 048
     Dates: start: 20240410, end: 20240508
  2. SIROLIMUS [Suspect]
     Active Substance: SIROLIMUS
     Dosage: 1 MG, DAILY
     Route: 048
     Dates: start: 20240509, end: 20240625
  3. SIROLIMUS [Suspect]
     Active Substance: SIROLIMUS
     Dosage: 0.5 MG, DAILY
     Route: 048
     Dates: start: 20240724
  4. SIROLIMUS [Suspect]
     Active Substance: SIROLIMUS
     Indication: Klippel-Trenaunay syndrome
     Dosage: 0.5 MG
     Route: 048
     Dates: start: 20250514
  5. SIROLIMUS [Suspect]
     Active Substance: SIROLIMUS
     Dosage: 0.6 MG, DAILY (GRANULATE)
     Route: 048
     Dates: start: 20250625

REACTIONS (7)
  - Cellulitis [Recovered/Resolved]
  - Hypervolaemia [Recovering/Resolving]
  - Upper respiratory tract inflammation [Recovered/Resolved]
  - Pneumonia [Recovering/Resolving]
  - Drug level increased [Unknown]
  - Pyrexia [Recovering/Resolving]
  - Lymphadenitis [Recovered/Resolved]

NARRATIVE: CASE EVENT DATE: 20240424
